FAERS Safety Report 9144063 (Version 1)
Quarter: 2013Q1

REPORT INFORMATION
  Report Type: Spontaneous
  Country: US (occurrence: US)
  Receive Date: 20130306
  Receipt Date: 20130306
  Transmission Date: 20140127
  Serious: Yes (Other)
  Sender: FDA-Public Use
  Company Number: US-GLAXOSMITHKLINE-A1013533A

PATIENT
  Age: 82 Year
  Sex: Female

DRUGS (7)
  1. ADVAIR [Suspect]
     Indication: CHRONIC OBSTRUCTIVE PULMONARY DISEASE
     Dosage: 1PUFF TWICE PER DAY
     Route: 055
     Dates: start: 201206, end: 201209
  2. ASPIRIN [Concomitant]
  3. LISINOPRIL [Concomitant]
  4. HYDROCHLOROTHIAZIDE [Concomitant]
  5. VITAMIN C [Concomitant]
  6. NEBULIZER [Concomitant]
  7. OXYGEN [Concomitant]

REACTIONS (6)
  - Retinal detachment [Recovered/Resolved]
  - Cough [Recovered/Resolved]
  - Oral candidiasis [Recovered/Resolved]
  - Visual impairment [Not Recovered/Not Resolved]
  - Eye disorder [Unknown]
  - Drug administration error [Unknown]
